FAERS Safety Report 18253560 (Version 1)
Quarter: 2020Q3

REPORT INFORMATION
  Report Type: Spontaneous
  Country: GB (occurrence: GB)
  Receive Date: 20200910
  Receipt Date: 20200910
  Transmission Date: 20201103
  Serious: Yes (Other)
  Sender: FDA-Public Use
  Company Number: GB-AMGEN-GBRSP2020144487

PATIENT
  Sex: Female

DRUGS (1)
  1. PROLIA [Suspect]
     Active Substance: DENOSUMAB
     Indication: OSTEOPOROSIS
     Dosage: 150 MILLIGRAM, Q6MO
     Route: 065
     Dates: start: 201903, end: 202003

REACTIONS (10)
  - Metamorphopsia [Unknown]
  - Fatigue [Unknown]
  - Extrasystoles [Unknown]
  - Bone pain [Unknown]
  - Palpitations [Unknown]
  - Arthralgia [Unknown]
  - Nausea [Unknown]
  - Vision blurred [Unknown]
  - Arrhythmia [Unknown]
  - Tricuspid valve incompetence [Unknown]

NARRATIVE: CASE EVENT DATE: 201909
